FAERS Safety Report 5328993-9 (Version None)
Quarter: 2007Q2

REPORT INFORMATION
  Report Type: 
  Country: None (occurrence: None)
  Receive Date: 20070515
  Receipt Date: 20070508
  Transmission Date: 20071010
  Serious: Yes (Hospitalization)
  Sender: FDA-Public Use
  Company Number: 163-20785-07010047

PATIENT
  Age: 44 Year

DRUGS (1)
  1. THALOMID [Suspect]
     Indication: MULTIPLE MYELOMA
     Dosage: 100 MG, 1 IN 1 D, ORAL
     Route: 048
     Dates: start: 20061201, end: 20070101

REACTIONS (5)
  - ASTHENIA [None]
  - NAUSEA [None]
  - PYREXIA [None]
  - VISUAL DISTURBANCE [None]
  - VOMITING [None]
